FAERS Safety Report 13917246 (Version 1)
Quarter: 2017Q3

REPORT INFORMATION
  Report Type: Spontaneous
  Country: US (occurrence: None)
  Receive Date: 20170827
  Receipt Date: 20170827
  Transmission Date: 20171127
  Serious: Yes (Hospitalization)
  Sender: FDA-Public Use
  Company Number: None

PATIENT
  Age: 72 Year
  Sex: Female

DRUGS (1)
  1. SUTENT [Suspect]
     Active Substance: SUNITINIB MALATE
     Indication: NEOPLASM MALIGNANT
     Dosage: 1 CAPSULE ONCE DAILY FOR 21 DAYS WITH 1 WEEK REST, ORAL
     Route: 048
     Dates: start: 20170215, end: 20170803

REACTIONS (9)
  - Pyrexia [None]
  - Anaemia [None]
  - Chills [None]
  - Fatigue [None]
  - Lethargy [None]
  - Renal failure [None]
  - Therapy cessation [None]
  - Haematochezia [None]
  - International normalised ratio increased [None]

NARRATIVE: CASE EVENT DATE: 20170803
